FAERS Safety Report 13342589 (Version 1)
Quarter: 2017Q1

REPORT INFORMATION
  Report Type: Spontaneous
  Country: AU (occurrence: AU)
  Receive Date: 20170316
  Receipt Date: 20170316
  Transmission Date: 20170428
  Serious: Yes (Other)
  Sender: FDA-Public Use
  Company Number: AU-JNJFOC-20170307741

PATIENT
  Sex: Female

DRUGS (1)
  1. INVEGA SUSTENNA [Suspect]
     Active Substance: PALIPERIDONE PALMITATE
     Indication: PRODUCT USED FOR UNKNOWN INDICATION
     Route: 030

REACTIONS (14)
  - Overdose [Unknown]
  - Anhedonia [Unknown]
  - Thinking abnormal [Unknown]
  - Thirst [Unknown]
  - Feeling abnormal [Unknown]
  - Diabetes mellitus [Unknown]
  - Communication disorder [Unknown]
  - Personality change [Unknown]
  - Mental impairment [Unknown]
  - Contusion [Unknown]
  - Weight increased [Unknown]
  - Suicidal ideation [Unknown]
  - Staring [Unknown]
  - Apathy [Unknown]
